FAERS Safety Report 15255581 (Version 1)
Quarter: 2018Q3

REPORT INFORMATION
  Report Type: Spontaneous
  Country: US (occurrence: US)
  Receive Date: 20180717
  Receipt Date: 20180717
  Transmission Date: 20181010
  Serious: No
  Sender: FDA-Public Use
  Company Number: None

PATIENT
  Age: 64 Year
  Sex: Female
  Weight: 72 kg

DRUGS (14)
  1. LORAZEPAM. [Suspect]
     Active Substance: LORAZEPAM
     Indication: HEART RATE INCREASED
     Dosage: ?          QUANTITY:90 TABLET(S);?
     Route: 048
  2. LORAZEPAM. [Concomitant]
     Active Substance: LORAZEPAM
  3. EMERGENCY INHALER [Concomitant]
     Active Substance: UNSPECIFIED INGREDIENT
  4. VITAMIN D3 [Concomitant]
     Active Substance: CHOLECALCIFEROL
  5. QVAR INHALER [Concomitant]
  6. LORAZEPAM. [Suspect]
     Active Substance: LORAZEPAM
     Indication: PANIC ATTACK
     Dosage: ?          QUANTITY:90 TABLET(S);?
     Route: 048
  7. ELDEBERRY [Concomitant]
  8. VITAMIN C AND ZINC [Concomitant]
  9. LORAZEPAM. [Suspect]
     Active Substance: LORAZEPAM
     Indication: ANXIETY
     Dosage: ?          QUANTITY:90 TABLET(S);?
     Route: 048
  10. ESSENTIAL OILS. [Concomitant]
     Active Substance: ESSENTIAL OILS
  11. ARNICA GEL [Concomitant]
  12. FLONASE GENERIC [Concomitant]
  13. ZANTAC [Concomitant]
     Active Substance: RANITIDINE HYDROCHLORIDE
  14. BENYDRYL [Concomitant]

REACTIONS (6)
  - Product substitution issue [None]
  - Insomnia [None]
  - Disease recurrence [None]
  - Anxiety [None]
  - Panic attack [None]
  - Malaise [None]

NARRATIVE: CASE EVENT DATE: 20180620
